FAERS Safety Report 4599947-5 (Version None)
Quarter: 2005Q1

REPORT INFORMATION
  Report Type: 
  Country: None (occurrence: None)
  Receive Date: 20050304
  Receipt Date: 20050304
  Transmission Date: 20050727
  Serious: Yes (Other)
  Sender: FDA-Public Use
  Company Number: None

PATIENT
  Age: 83 Year
  Sex: Female
  Weight: 104 kg

DRUGS (10)
  1. DIGOXIN [Suspect]
     Indication: CARDIAC FAILURE CONGESTIVE
     Dosage: 0.125 MG DAILY ORAL
     Route: 048
     Dates: start: 20050302, end: 20050302
  2. KETEK [Suspect]
     Dates: start: 20050302, end: 20050302
  3. LASIX [Concomitant]
  4. LISINOPRIL [Concomitant]
  5. INSULIN [Concomitant]
  6. PRILOSEC [Concomitant]
  7. ALDACTONE [Concomitant]
  8. COUMADIN [Concomitant]
  9. ALLOPURINOL [Concomitant]
  10. CARDIZEM [Concomitant]

REACTIONS (1)
  - LABORATORY TEST ABNORMAL [None]
